FAERS Safety Report 15019037 (Version 1)
Quarter: 2018Q2

REPORT INFORMATION
  Report Type: Spontaneous
  Country: US (occurrence: US)
  Receive Date: 20180524
  Receipt Date: 20180524
  Transmission Date: 20180711
  Serious: Yes (Hospitalization)
  Sender: FDA-Public Use
  Company Number: None

PATIENT
  Age: 70 Year
  Sex: Male
  Weight: 102.51 kg

DRUGS (1)
  1. WARFARIN [Suspect]
     Active Substance: WARFARIN
     Indication: ATRIAL FIBRILLATION
     Dates: start: 20160912, end: 20180203

REACTIONS (8)
  - Gastric ulcer [None]
  - Helicobacter test positive [None]
  - Abdominal pain [None]
  - Duodenal ulcer [None]
  - Oesophagitis [None]
  - Melaena [None]
  - Gastritis [None]
  - Gastric haemorrhage [None]

NARRATIVE: CASE EVENT DATE: 20180203
